FAERS Safety Report 4352527-9 (Version None)
Quarter: 2004Q2

REPORT INFORMATION
  Report Type: 
  Country: None (occurrence: None)
  Receive Date: 20040409
  Receipt Date: 20040121
  Transmission Date: 20050107
  Serious: No
  Sender: FDA-Public Use
  Company Number: PHEH2003US11537

PATIENT
  Age: 24 Year
  Sex: Male
  Weight: 75.3 kg

DRUGS (5)
  1. ELIDEL [Suspect]
     Indication: ECZEMA
     Dosage: BID, TOPICAL; TOPICAL
     Route: 061
     Dates: start: 20030321
  2. ELIDEL [Suspect]
     Indication: ECZEMA
     Dosage: BID, TOPICAL; TOPICAL
     Route: 061
     Dates: start: 20031001
  3. VALERIAN ROOT (VALERIANA OFFICINALIS ROOT) [Concomitant]
  4. PASSIFLORA EXTRACT [Concomitant]
  5. EGEL (ERYTHROMYCIN) [Concomitant]

REACTIONS (5)
  - BLOOD PRESSURE INCREASED [None]
  - COUGH [None]
  - HERPES SIMPLEX [None]
  - INSOMNIA [None]
  - PHARYNGOLARYNGEAL PAIN [None]
